FAERS Safety Report 21993910 (Version 1)
Quarter: 2023Q1

REPORT INFORMATION
  Report Type: Spontaneous
  Country: US (occurrence: US)
  Receive Date: 20230215
  Receipt Date: 20230215
  Transmission Date: 20230417
  Serious: No
  Sender: FDA-Public Use
  Company Number: US-Accord-289971

PATIENT
  Sex: Female

DRUGS (2)
  1. LEVOTHYROXINE [Suspect]
     Active Substance: LEVOTHYROXINE
     Indication: Thyroiditis
     Dosage: 150 MCG, ONCE A DAY
     Route: 048
     Dates: start: 20221123
  2. ZOLOFT [Concomitant]
     Active Substance: SERTRALINE HYDROCHLORIDE
     Dosage: AT NIGHT 50MG, ONCE A DAY
     Route: 048

REACTIONS (2)
  - Product substitution issue [Unknown]
  - Product solubility abnormal [Unknown]
